FAERS Safety Report 5836750-X (Version None)
Quarter: 2008Q3

REPORT INFORMATION
  Report Type: 
  Country: None (occurrence: None)
  Receive Date: 20080806
  Receipt Date: 20080806
  Transmission Date: 20090109
  Serious: Yes (Other)
  Sender: FDA-Public Use
  Company Number: None

PATIENT
  Age: 51 Year
  Sex: Female
  Weight: 86.1834 kg

DRUGS (1)
  1. VYTORIN [Suspect]
     Dates: start: 20070101, end: 20070601

REACTIONS (3)
  - MUSCLE ATROPHY [None]
  - MUSCLE INJURY [None]
  - PAIN IN EXTREMITY [None]
